FAERS Safety Report 23574453 (Version 9)
Quarter: 2025Q2

REPORT INFORMATION
  Report Type: Report from Study
  Country: US (occurrence: US)
  Receive Date: 20240228
  Receipt Date: 20250507
  Transmission Date: 20250717
  Serious: Yes (Other)
  Sender: TAKEDA
  Company Number: US-TAKEDA-2023TUS095933

PATIENT
  Sex: Female
  Weight: 46 kg

DRUGS (16)
  1. LANADELUMAB [Suspect]
     Active Substance: LANADELUMAB
     Indication: Immune system disorder
     Dosage: 300 MILLIGRAM, Q2WEEKS
     Dates: start: 20230921
  2. LANADELUMAB [Suspect]
     Active Substance: LANADELUMAB
  3. LANADELUMAB [Suspect]
     Active Substance: LANADELUMAB
  4. ICATIBANT [Suspect]
     Active Substance: ICATIBANT ACETATE
     Indication: Immune system disorder
  5. ICATIBANT [Suspect]
     Active Substance: ICATIBANT ACETATE
  6. FIRAZYR [Suspect]
     Active Substance: ICATIBANT ACETATE
     Indication: Immune system disorder
  7. FIRAZYR [Suspect]
     Active Substance: ICATIBANT ACETATE
  8. MACROBID [Suspect]
     Active Substance: NITROFURANTOIN\NITROFURANTOIN MONOHYDRATE
     Indication: Urinary tract infection
  9. OMEPRAZOLE [Concomitant]
     Active Substance: OMEPRAZOLE
  10. ASPIRIN [Concomitant]
     Active Substance: ASPIRIN
  11. FLUTICASONE PROPIONATE [Concomitant]
     Active Substance: FLUTICASONE PROPIONATE
  12. ESTRADIOL [Concomitant]
     Active Substance: ESTRADIOL
  13. MINOCYCLINE HYDROCHLORIDE [Concomitant]
     Active Substance: MINOCYCLINE HYDROCHLORIDE
  14. COLLAGEN [Concomitant]
     Active Substance: COLLAGEN
  15. LUTEIN [Concomitant]
     Active Substance: LUTEIN
  16. SAJAZIR [Concomitant]
     Active Substance: ICATIBANT ACETATE

REACTIONS (21)
  - Lower limb fracture [Unknown]
  - Streptococcal infection [Unknown]
  - Stress [Unknown]
  - Skin infection [Unknown]
  - Tension [Unknown]
  - Agitation [Unknown]
  - Fungal infection [Unknown]
  - Skin discolouration [Recovering/Resolving]
  - Urinary tract infection [Unknown]
  - Rash macular [Recovering/Resolving]
  - Drug resistance [Unknown]
  - Multiple allergies [Not Recovered/Not Resolved]
  - Emotional distress [Unknown]
  - Insurance issue [Unknown]
  - Prescription drug used without a prescription [Unknown]
  - Sinusitis [Unknown]
  - Product dose omission issue [Unknown]
  - Inappropriate schedule of product administration [Unknown]
  - Hereditary angioedema [Unknown]
  - Injection site reaction [Recovering/Resolving]
  - Injection site pain [Recovering/Resolving]
